FAERS Safety Report 6515934-1 (Version None)
Quarter: 2009Q4

REPORT INFORMATION
  Report Type: 
  Country: None (occurrence: None)
  Receive Date: 20091223
  Receipt Date: 20090423
  Transmission Date: 20100525
  Serious: No
  Sender: FDA-Public Use
  Company Number: US-ABBOTT-09P-163-0569963-00

PATIENT
  Sex: Male

DRUGS (5)
  1. LUPRON DEPOT [Suspect]
     Indication: PROSTATE CANCER METASTATIC
     Route: 030
     Dates: start: 20080805
  2. FLOMAX [Concomitant]
     Indication: DYSURIA
  3. LISINOPRIL [Concomitant]
     Indication: HYPERTENSION
  4. SIMVASTATIN [Concomitant]
     Indication: HYPERCHOLESTEROLAEMIA
  5. CARVEDILOL [Concomitant]
     Indication: CORONARY ARTERY DISEASE

REACTIONS (5)
  - INJECTION SITE ERYTHEMA [None]
  - INJECTION SITE INFLAMMATION [None]
  - INJECTION SITE SWELLING [None]
  - MUSCULAR WEAKNESS [None]
  - MYALGIA [None]
